FAERS Safety Report 25167601 (Version 2)
Quarter: 2025Q2

REPORT INFORMATION
  Report Type: Report from Study
  Country: FR (occurrence: FR)
  Receive Date: 20250407
  Receipt Date: 20250416
  Transmission Date: 20250717
  Serious: Yes (Death, Hospitalization, Other)
  Sender: SANOFI AVENTIS
  Company Number: FR-SA-2025SA048099

PATIENT
  Age: 70 Year
  Sex: Female

DRUGS (1)
  1. BELUMOSUDIL MESYLATE [Suspect]
     Active Substance: BELUMOSUDIL MESYLATE
     Indication: Chronic graft versus host disease
     Dosage: 200 MG, BID
     Route: 048
     Dates: start: 202212

REACTIONS (3)
  - Cerebrovascular accident [Fatal]
  - Cardiomyopathy [Unknown]
  - Inappropriate schedule of product administration [Unknown]

NARRATIVE: CASE EVENT DATE: 20221201
